FAERS Safety Report 4646598-X (Version None)
Quarter: 2005Q2

REPORT INFORMATION
  Report Type: 
  Country: None (occurrence: None)
  Receive Date: 20050427
  Receipt Date: 20050121
  Transmission Date: 20051028
  Serious: No
  Sender: FDA-Public Use
  Company Number: US-GLAXOSMITHKLINE-A0541720A

PATIENT
  Age: 67 Year
  Sex: Female
  Weight: 81.8 kg

DRUGS (6)
  1. FLOVENT [Suspect]
     Indication: ASTHMA
     Dosage: 1PUFF TWICE PER DAY
     Route: 055
     Dates: start: 20040301
  2. LIPITOR [Concomitant]
     Dosage: 10MG PER DAY
     Route: 048
  3. NORVASC [Concomitant]
     Dosage: 5MG PER DAY
     Route: 048
  4. SYNTHROID [Concomitant]
     Dosage: 100MG PER DAY
     Route: 048
  5. XANAX [Concomitant]
     Dosage: .5MG TWICE PER DAY
     Route: 048
  6. THEO-24 [Concomitant]
     Dosage: 400MG TWICE PER DAY
     Route: 048

REACTIONS (2)
  - DRUG INEFFECTIVE [None]
  - PHARMACEUTICAL PRODUCT COMPLAINT [None]
